FAERS Safety Report 4784770-9 (Version None)
Quarter: 2005Q3

REPORT INFORMATION
  Report Type: 
  Country: None (occurrence: None)
  Receive Date: 20050929
  Receipt Date: 20050929
  Transmission Date: 20060218
  Serious: Yes (Hospitalization)
  Sender: FDA-Public Use
  Company Number: None

PATIENT
  Age: 28 Year
  Sex: Female
  Weight: 67.6 kg

DRUGS (1)
  1. PROMETHAZINE [Suspect]
     Indication: NAUSEA
     Dosage: 25 MG IV Q4 HOURS PRN IV BOLUS
     Route: 040
     Dates: start: 20050625, end: 20050628

REACTIONS (9)
  - CELLULITIS [None]
  - ECCHYMOSIS [None]
  - HAEMATOMA [None]
  - INFUSION RELATED REACTION [None]
  - INFUSION SITE ERYTHEMA [None]
  - INFUSION SITE OEDEMA [None]
  - INFUSION SITE PAIN [None]
  - NECROSIS [None]
  - VASCULAR ACCESS COMPLICATION [None]
